FAERS Safety Report 23600550 (Version 1)
Quarter: 2024Q1

REPORT INFORMATION
  Report Type: Spontaneous
  Country: BE (occurrence: BE)
  Receive Date: 20240306
  Receipt Date: 20240306
  Transmission Date: 20240410
  Serious: Yes (Hospitalization)
  Sender: FDA-Public Use
  Company Number: None

PATIENT
  Age: 37 Year
  Sex: Female

DRUGS (16)
  1. VALGANCICLOVIR [Suspect]
     Active Substance: VALGANCICLOVIR
     Indication: Antiviral prophylaxis
     Dosage: 1 DF, BID (TOTAL 900 MG)
     Route: 048
     Dates: start: 20070323, end: 20070626
  2. VALGANCICLOVIR [Suspect]
     Active Substance: VALGANCICLOVIR
     Indication: Antiviral prophylaxis
     Dosage: ,REDUCED TO 450 MG DAILY?DAILY DOSE: 1 DOSAGE FORM
     Route: 048
     Dates: start: 20070626, end: 20070930
  3. MYCOPHENOLATE MOFETIL [Suspect]
     Active Substance: MYCOPHENOLATE MOFETIL
     Indication: Product used for unknown indication
     Dosage: DAILY DOSE: 2 GRAM
     Dates: start: 20070313
  4. CYCLOSPORINE [Suspect]
     Active Substance: CYCLOSPORINE
     Indication: Product used for unknown indication
     Dosage: DAILY DOSE: 350 MILLIGRAM
     Dates: start: 20070314
  5. CYCLOSPORINE [Suspect]
     Active Substance: CYCLOSPORINE
     Indication: Product used for unknown indication
     Dosage: DAILY DOSE: 225 MILLIGRAM
  6. NORVASC [Concomitant]
     Active Substance: AMLODIPINE BESYLATE
     Indication: Product used for unknown indication
     Dosage: DAILY DOSE: 5 MILLIGRAM
     Dates: start: 20070319
  7. METHYLPREDNISOLONE [Concomitant]
     Active Substance: METHYLPREDNISOLONE
     Indication: Product used for unknown indication
     Dosage: DAILY DOSE: 4 MILLIGRAM
     Dates: start: 20070313
  8. Vasodil [Concomitant]
     Indication: Product used for unknown indication
     Dosage: DAILY DOSE: 5 MILLIGRAM
     Dates: start: 20070327
  9. FLUVASTATIN [Concomitant]
     Active Substance: FLUVASTATIN SODIUM
     Indication: Product used for unknown indication
     Dosage: DAILY DOSE: 80 MILLIGRAM
     Dates: start: 20070404
  10. BASOCEF [Concomitant]
     Indication: Product used for unknown indication
     Dosage: DAILY DOSE: 2 GRAM
     Dates: start: 20070413, end: 20070413
  11. BASOCEF [Concomitant]
     Indication: Product used for unknown indication
     Dates: start: 20070414, end: 20070418
  12. DALTEPARIN SODIUM [Concomitant]
     Active Substance: DALTEPARIN SODIUM
     Indication: Product used for unknown indication
     Dates: start: 20030412, end: 20070417
  13. METOPROLOL SUCCINATE [Concomitant]
     Active Substance: METOPROLOL SUCCINATE
     Indication: Product used for unknown indication
     Dosage: DAILY DOSE: 95 MILLIGRAM
     Dates: start: 20070319
  14. NEXIUM [Concomitant]
     Active Substance: ESOMEPRAZOLE MAGNESIUM
     Indication: Product used for unknown indication
     Dosage: DAILY DOSE: 20 MILLIGRAM
     Dates: start: 20070313
  15. RAMIPRIL [Concomitant]
     Active Substance: RAMIPRIL
     Indication: Product used for unknown indication
     Dosage: DAILY DOSE: 5 MILLIGRAM
     Dates: start: 20070327
  16. HYDROCHLOROTHIAZIDE [Concomitant]
     Active Substance: HYDROCHLOROTHIAZIDE
     Indication: Product used for unknown indication
     Dosage: DAILY DOSE: 25 MILLIGRAM
     Dates: start: 20070404

REACTIONS (2)
  - Cytomegalovirus infection [Recovered/Resolved]
  - Pneumocystis jirovecii pneumonia [Recovered/Resolved]

NARRATIVE: CASE EVENT DATE: 20070607
